FAERS Safety Report 8725716 (Version 2)
Quarter: 2012Q4

REPORT INFORMATION
  Report Type: 
  Country: MY (occurrence: MY)
  Receive Date: 20120815
  Receipt Date: 20121017
  Transmission Date: 20130627
  Serious: Yes (Hospitalization)
  Sender: FDA-Public Use
  Company Number: MY-ROCHE-1099950

PATIENT
  Age: 73 Year
  Sex: Male

DRUGS (1)
  1. METALYSE [Suspect]
     Indication: MYOCARDIAL INFARCTION
     Dosage: single dose
     Route: 042
     Dates: start: 20120802, end: 20120802

REACTIONS (4)
  - Transient ischaemic attack [Recovered/Resolved]
  - Somnolence [Recovered/Resolved]
  - Dizziness [Recovered/Resolved]
  - Hypotension [Recovered/Resolved]
